FAERS Safety Report 5213934-5 (Version None)
Quarter: 2007Q1

REPORT INFORMATION
  Report Type: 
  Country: None (occurrence: None)
  Receive Date: 20070117
  Receipt Date: 20070102
  Transmission Date: 20070707
  Serious: Yes (Life-Threatening, Hospitalization, Other)
  Sender: FDA-Public Use
  Company Number: 200611AGG00523

PATIENT
  Age: 42 Year
  Sex: Male

DRUGS (8)
  1. TIROFIBAN (TIROFIBAN HCL)  (48 ML, 12 ML)  (MEDICURE, INC) [Suspect]
     Dosage: SEE IMAGE
     Dates: start: 20061121, end: 20061121
  2. TIROFIBAN (TIROFIBAN HCL)  (48 ML, 12 ML)  (MEDICURE, INC) [Suspect]
     Dosage: SEE IMAGE
     Dates: start: 20061121, end: 20061122
  3. SUFENTANIL CITRATE [Concomitant]
  4. ASPIRIN [Concomitant]
  5. HEPARIN [Concomitant]
  6. DORMICUM [Concomitant]
  7. NOREPINEPHRINE BITARTRATE [Concomitant]
  8. PLAVIX [Concomitant]

REACTIONS (3)
  - MYOCARDIAL INFARCTION [None]
  - SEPSIS [None]
  - THROMBOCYTOPENIA [None]
